FAERS Safety Report 7986027-1 (Version None)
Quarter: 2011Q4

REPORT INFORMATION
  Report Type: 
  Country: None (occurrence: None)
  Receive Date: 20111216
  Receipt Date: 20101229
  Transmission Date: 20120403
  Serious: Yes (Other)
  Sender: FDA-Public Use
  Company Number: US-BRISTOL-MYERS SQUIBB COMPANY-15465511

PATIENT
  Age: 19 Year
  Sex: Female
  Weight: 119 kg

DRUGS (9)
  1. DIAZEPAM [Concomitant]
  2. ZYPREXA [Concomitant]
  3. SERTRALINE HYDROCHLORIDE [Concomitant]
  4. BENZTROPINE MESYLATE [Concomitant]
  5. LAMOTRIGINE [Concomitant]
  6. ABILIFY [Suspect]
  7. GUANFACINE HYDROCHLORIDE [Concomitant]
  8. LITHIUM [Concomitant]
  9. BUSPIRONE HCL [Concomitant]

REACTIONS (6)
  - RASH PRURITIC [None]
  - SUICIDAL IDEATION [None]
  - DIZZINESS [None]
  - WEIGHT INCREASED [None]
  - NAUSEA [None]
  - TIC [None]
